FAERS Safety Report 8939849 (Version 1)
Quarter: 2012Q4

REPORT INFORMATION
  Report Type: 
  Country: US (occurrence: US)
  Receive Date: 20121203
  Receipt Date: 20121203
  Transmission Date: 20130627
  Serious: Yes (Other)
  Sender: FDA-Public Use
  Company Number: US-PFIZER INC-2012302075

PATIENT
  Age: 66 Year
  Sex: Female
  Weight: 66 kg

DRUGS (2)
  1. LIPITOR [Suspect]
     Dosage: 10 mg, daily
  2. ZOLOFT [Suspect]
     Dosage: 100 mg three tablets, UNK

REACTIONS (1)
  - Lung neoplasm malignant [Unknown]
